FAERS Safety Report 17703667 (Version 1)
Quarter: 2020Q2

REPORT INFORMATION
  Report Type: Spontaneous
  Country: US (occurrence: US)
  Receive Date: 20200424
  Receipt Date: 20200424
  Transmission Date: 20200714
  Serious: Yes (Hospitalization, Other)
  Sender: FDA-Public Use
  Company Number: US-EMCURE PHARMACEUTICALS LTD-2020-EPL-000471

PATIENT
  Age: 45 Year
  Sex: Female

DRUGS (2)
  1. GEMCITABINE HYDROCHLORIDE. [Suspect]
     Active Substance: GEMCITABINE HYDROCHLORIDE
     Indication: UTERINE LEIOMYOSARCOMA
     Dosage: 900 MG/M^2 (DAY 1 AND 8), EVERY 21 DAYS
     Route: 065
  2. DOCETAXEL. [Concomitant]
     Active Substance: DOCETAXEL
     Indication: UTERINE LEIOMYOSARCOMA
     Dosage: 75 MG/M^2 (DAY 8),EVERY 21 DAYS
     Route: 065

REACTIONS (2)
  - Immune thrombocytopenia [Recovered/Resolved]
  - Off label use [Unknown]
